FAERS Safety Report 10074349 (Version 1)
Quarter: 2014Q2

REPORT INFORMATION
  Report Type: Spontaneous
  Country: US (occurrence: US)
  Receive Date: 20140411
  Receipt Date: 20140411
  Transmission Date: 20141212
  Serious: No
  Sender: FDA-Public Use
  Company Number: US-SANOFI-AVENTIS-2013SA055067

PATIENT
  Age: 62 Year
  Sex: Female

DRUGS (5)
  1. ALLEGRA-D, 12 HR [Suspect]
     Indication: HYPERSENSITIVITY
     Route: 048
  2. ALLEGRA-D, 12 HR [Suspect]
     Indication: UNEVALUABLE EVENT
     Route: 048
  3. ANTIHYPERTENSIVES [Concomitant]
  4. DIURETICS [Concomitant]
  5. POTASSIUM [Concomitant]

REACTIONS (4)
  - Somnolence [Not Recovered/Not Resolved]
  - Insomnia [Unknown]
  - Drug effect decreased [Unknown]
  - Underdose [Unknown]
